FAERS Safety Report 24725475 (Version 1)
Quarter: 2024Q4

REPORT INFORMATION
  Report Type: Spontaneous
  Country: AU (occurrence: AU)
  Receive Date: 20241212
  Receipt Date: 20241212
  Transmission Date: 20250114
  Serious: Yes (Other)
  Sender: RANBAXY
  Company Number: AU-SUN PHARMACEUTICAL INDUSTRIES LTD-2024R1-482987

PATIENT
  Sex: Female

DRUGS (1)
  1. CIPROFLOXACIN [Suspect]
     Active Substance: CIPROFLOXACIN
     Indication: Bacterial infection
     Dosage: UNK (INTERVAL: 5 DAY)
     Route: 065
     Dates: start: 202310

REACTIONS (26)
  - Facial paralysis [Unknown]
  - Neuropathy peripheral [Unknown]
  - Hemiparesis [Unknown]
  - Arthritis [Unknown]
  - Bone pain [Unknown]
  - Diarrhoea [Unknown]
  - Gastrointestinal disorder [Unknown]
  - Heart rate increased [Unknown]
  - Insomnia [Unknown]
  - Ligament disorder [Unknown]
  - Lymphatic disorder [Unknown]
  - Muscle mass [Unknown]
  - Musculoskeletal stiffness [Unknown]
  - Neurological symptom [Unknown]
  - Pain in extremity [Unknown]
  - Panic attack [Unknown]
  - Paranoia [Unknown]
  - Peripheral coldness [Unknown]
  - Peroneal nerve palsy [Unknown]
  - Postural orthostatic tachycardia syndrome [Unknown]
  - Product complaint [Unknown]
  - Product prescribing issue [Unknown]
  - Tachycardia [Unknown]
  - Tendon disorder [Unknown]
  - Thoracic outlet syndrome [Unknown]
  - Weight decreased [Unknown]
